FAERS Safety Report 12839704 (Version 1)
Quarter: 2016Q4

REPORT INFORMATION
  Report Type: Spontaneous
  Country: US (occurrence: US)
  Receive Date: 20161011
  Receipt Date: 20161011
  Transmission Date: 20170207
  Serious: Yes (Disabling)
  Sender: FDA-Public Use
  Company Number: None

PATIENT
  Age: 67 Year
  Sex: Female
  Weight: 75.6 kg

DRUGS (7)
  1. PROLIA [Suspect]
     Active Substance: DENOSUMAB
     Indication: OSTEOPOROSIS
     Dosage: OTHER INTRAMUSCULAR
     Route: 030
     Dates: start: 20160930
  2. SERTRALINE [Concomitant]
     Active Substance: SERTRALINE HYDROCHLORIDE
  3. MULTIVITAMIN [Concomitant]
     Active Substance: VITAMINS
  4. CALCIUM [Concomitant]
     Active Substance: CALCIUM
  5. CITRACEL [Concomitant]
  6. PRILOSEC [Concomitant]
     Active Substance: OMEPRAZOLE MAGNESIUM
  7. VITAMIN D [Concomitant]
     Active Substance: CHOLECALCIFEROL

REACTIONS (10)
  - Myalgia [None]
  - Flatulence [None]
  - Constipation [None]
  - Diarrhoea [None]
  - Chills [None]
  - Arthralgia [None]
  - Back pain [None]
  - Abdominal pain lower [None]
  - Irritable bowel syndrome [None]
  - Fatigue [None]

NARRATIVE: CASE EVENT DATE: 20160901
